FAERS Safety Report 25095777 (Version 2)
Quarter: 2025Q2

REPORT INFORMATION
  Report Type: Report from Study
  Country: US (occurrence: US)
  Receive Date: 20250319
  Receipt Date: 20250508
  Transmission Date: 20250716
  Serious: Yes (Hospitalization, Other)
  Sender: TAKEDA
  Company Number: US-TAKEDA-2025TUS013605

PATIENT
  Age: 51 Year
  Sex: Male

DRUGS (5)
  1. TEDUGLUTIDE [Suspect]
     Active Substance: TEDUGLUTIDE
     Indication: Short-bowel syndrome
     Dosage: 4.1 MILLIGRAM, QD
     Dates: start: 20250107, end: 20250313
  2. TEDUGLUTIDE [Suspect]
     Active Substance: TEDUGLUTIDE
  3. TEDUGLUTIDE [Suspect]
     Active Substance: TEDUGLUTIDE
  4. TEDUGLUTIDE [Suspect]
     Active Substance: TEDUGLUTIDE
  5. IRON [Suspect]
     Active Substance: IRON
     Indication: Product used for unknown indication

REACTIONS (7)
  - Haemoglobin decreased [Recovering/Resolving]
  - Dry mouth [Recovering/Resolving]
  - Abdominal distension [Recovering/Resolving]
  - Wound [Recovered/Resolved]
  - Lower respiratory tract infection [Recovered/Resolved]
  - Gastrointestinal pain [Recovered/Resolved]
  - Faeces discoloured [Recovered/Resolved]

NARRATIVE: CASE EVENT DATE: 20250405
